FAERS Safety Report 9745288 (Version 3)
Quarter: 2014Q3

REPORT INFORMATION
  Report Type: Report from Study
  Country: CA (occurrence: CA)
  Receive Date: 20131211
  Receipt Date: 20140702
  Transmission Date: 20150326
  Serious: Yes (Hospitalization)
  Sender: FDA-Public Use
  Company Number: CA-JNJFOC-20131204472

PATIENT
  Sex: Male
  Weight: 62.6 kg

DRUGS (1)
  1. REMICADE [Suspect]
     Active Substance: INFLIXIMAB
     Indication: COLITIS ULCERATIVE
     Dosage: 10MG/KG
     Route: 042
     Dates: start: 20110630

REACTIONS (6)
  - Off label use [Unknown]
  - Brain neoplasm [Unknown]
  - Generalised tonic-clonic seizure [Unknown]
  - Aspiration [Unknown]
  - Vomiting [Unknown]
  - Incorrect dose administered [Unknown]

NARRATIVE: CASE EVENT DATE: 2013
